FAERS Safety Report 12951689 (Version 1)
Quarter: 2016Q4

REPORT INFORMATION
  Report Type: Spontaneous
  Country: US (occurrence: US)
  Receive Date: 20161117
  Receipt Date: 20161117
  Transmission Date: 20170207
  Serious: Yes (Other)
  Sender: FDA-Public Use
  Company Number: US-ELI_LILLY_AND_COMPANY-US201608001839

PATIENT
  Age: 45 Year
  Sex: Male
  Weight: 145.58 kg

DRUGS (9)
  1. AMRIX [Concomitant]
     Active Substance: CYCLOBENZAPRINE HYDROCHLORIDE
     Dosage: 15 MG, PRN
     Route: 065
  2. CYMBALTA [Suspect]
     Active Substance: DULOXETINE HYDROCHLORIDE
     Dosage: 120 MG, QD
     Route: 048
     Dates: start: 20130925
  3. OMEPRAZOLE. [Concomitant]
     Active Substance: OMEPRAZOLE
     Dosage: 20 MG, BID
     Route: 065
  4. MELOXICAM. [Concomitant]
     Active Substance: MELOXICAM
     Route: 065
  5. SYMBICORT [Concomitant]
     Active Substance: BUDESONIDE\FORMOTEROL FUMARATE DIHYDRATE
     Dosage: 4.5 UG, BID
     Route: 065
  6. CYMBALTA [Suspect]
     Active Substance: DULOXETINE HYDROCHLORIDE
     Dosage: UNK, UNKNOWN
     Route: 048
     Dates: end: 201407
  7. CYMBALTA [Suspect]
     Active Substance: DULOXETINE HYDROCHLORIDE
     Indication: PRODUCT USED FOR UNKNOWN INDICATION
     Dosage: 60 MG, BID
     Route: 048
     Dates: start: 20101208
  8. CYMBALTA [Suspect]
     Active Substance: DULOXETINE HYDROCHLORIDE
     Dosage: 60 MG, OTHER
     Route: 048
     Dates: start: 20131120
  9. TYLENOL ARTHRITIS PAIN [Concomitant]
     Active Substance: ACETAMINOPHEN
     Dosage: 650 MG, PRN
     Route: 065

REACTIONS (20)
  - Nausea [Unknown]
  - Dysphoria [Unknown]
  - Headache [Unknown]
  - Sensory disturbance [Unknown]
  - Vomiting [Unknown]
  - Fatigue [Unknown]
  - Hyperhidrosis [Unknown]
  - Agitation [Unknown]
  - Vertigo [Unknown]
  - Paraesthesia [Unknown]
  - Confusional state [Unknown]
  - Prescribed overdose [Unknown]
  - Drug withdrawal syndrome [Unknown]
  - Diarrhoea [Unknown]
  - Suicidal ideation [Unknown]
  - Irritability [Unknown]
  - Dizziness [Unknown]
  - Anxiety [Unknown]
  - Insomnia [Unknown]
  - Pain [Unknown]

NARRATIVE: CASE EVENT DATE: 20101208
